FAERS Safety Report 7929988-9 (Version None)
Quarter: 2011Q4

REPORT INFORMATION
  Report Type: 
  Country: None (occurrence: None)
  Receive Date: 20111121
  Receipt Date: 20111107
  Transmission Date: 20120403
  Serious: Yes (Other)
  Sender: FDA-Public Use
  Company Number: ZA-CELGENEUS-143-20785-11101403

PATIENT
  Sex: Male
  Weight: 71 kg

DRUGS (7)
  1. THALIDOMIDE [Suspect]
     Indication: MULTIPLE MYELOMA
     Dosage: 200 MILLIGRAM
     Route: 048
     Dates: end: 20110930
  2. ASPIRIN [Concomitant]
     Indication: THROMBOSIS PROPHYLAXIS
     Route: 065
  3. DIAMICRON [Concomitant]
     Indication: DIABETES MELLITUS
     Route: 065
  4. GLUCOPHAGE [Concomitant]
     Indication: DIABETES MELLITUS
     Route: 065
  5. THALIDOMIDE [Suspect]
     Dosage: 150 MILLIGRAM
     Route: 048
     Dates: start: 20111010
  6. LISORETIC [Concomitant]
     Indication: HYPERTENSION
     Route: 065
  7. PREDNISONE TAB [Concomitant]
     Dosage: 150 MILLIGRAM
     Route: 048

REACTIONS (5)
  - ANXIETY [None]
  - PANIC ATTACK [None]
  - RASH GENERALISED [None]
  - NEUROPATHY PERIPHERAL [None]
  - DEPRESSION [None]
